FAERS Safety Report 24857076 (Version 1)
Quarter: 2025Q1

REPORT INFORMATION
  Report Type: Spontaneous
  Country: US (occurrence: US)
  Receive Date: 20250117
  Receipt Date: 20250117
  Transmission Date: 20250409
  Serious: Yes (Hospitalization, Other)
  Sender: SANOFI AVENTIS
  Company Number: US-SA-2025SA014463

PATIENT
  Age: 23 Year
  Sex: Female
  Weight: 116.82 kg

DRUGS (1)
  1. DUPIXENT [Suspect]
     Active Substance: DUPILUMAB
     Indication: Dermatitis atopic
     Dosage: 300.000MG QOW
     Route: 058
     Dates: start: 20240913

REACTIONS (5)
  - Seizure [Unknown]
  - Ovarian germ cell teratoma benign [Unknown]
  - Idiopathic intracranial hypertension [Unknown]
  - Head discomfort [Unknown]
  - Thinking abnormal [Unknown]
